FAERS Safety Report 8522334-1 (Version None)
Quarter: 2012Q3

REPORT INFORMATION
  Report Type: 
  Country: None (occurrence: None)
  Receive Date: 20120709
  Receipt Date: 20120621
  Transmission Date: 20120928
  Serious: Yes (Other)
  Sender: FDA-Public Use
  Company Number: DSA_58051_2012

PATIENT
  Sex: Female

DRUGS (4)
  1. PROZAC [Concomitant]
  2. SEROQUEL [Concomitant]
  3. METHIMAZOLE [Concomitant]
  4. XENAZINE [Suspect]
     Indication: HUNTINGTON'S DISEASE
     Dosage: (12.5 MD TID ORAL)
     Dates: start: 20120329, end: 20120621

REACTIONS (8)
  - PANIC REACTION [None]
  - SUICIDAL IDEATION [None]
  - ANXIETY [None]
  - HYPERHIDROSIS [None]
  - DEPRESSED MOOD [None]
  - HUNGER [None]
  - DEPRESSION [None]
  - THYROID FUNCTION TEST ABNORMAL [None]
